FAERS Safety Report 16546702 (Version 2)
Quarter: 2019Q3

REPORT INFORMATION
  Report Type: Spontaneous
  Country: US (occurrence: US)
  Receive Date: 20190709
  Receipt Date: 20190709
  Transmission Date: 20191004
  Serious: No
  Sender: FDA-Public Use
  Company Number: US-ASTELLAS-2018US049337

PATIENT
  Age: 67 Year
  Sex: Male

DRUGS (4)
  1. DETROL LA [Suspect]
     Active Substance: TOLTERODINE TARTRATE
     Indication: PRODUCT USED FOR UNKNOWN INDICATION
     Route: 065
     Dates: start: 2013
  2. DETROL LA [Suspect]
     Active Substance: TOLTERODINE TARTRATE
     Route: 065
  3. MYRBETRIQ [Suspect]
     Active Substance: MIRABEGRON
     Indication: PRODUCT USED FOR UNKNOWN INDICATION
     Route: 065
     Dates: start: 20181109, end: 20181109
  4. MYRBETRIQ [Suspect]
     Active Substance: MIRABEGRON
     Indication: PRODUCT USED FOR UNKNOWN INDICATION
     Route: 065
     Dates: start: 20181113, end: 20181113

REACTIONS (4)
  - Urinary tract discomfort [Unknown]
  - Constipation [Unknown]
  - Dysuria [Unknown]
  - Urethral pain [Unknown]

NARRATIVE: CASE EVENT DATE: 20181109
